FAERS Safety Report 9032345 (Version 1)
Quarter: 2013Q1

REPORT INFORMATION
  Report Type: Spontaneous
  Country: US (occurrence: US)
  Receive Date: 20130125
  Receipt Date: 20130125
  Transmission Date: 20140127
  Serious: Yes (Other)
  Sender: FDA-Public Use
  Company Number: US-SANOFI-AVENTIS-2013SA003655

PATIENT
  Age: 21 Year
  Sex: Male

DRUGS (1)
  1. AMBIEN [Suspect]
     Indication: INSOMNIA
     Route: 048

REACTIONS (2)
  - Haematemesis [Not Recovered/Not Resolved]
  - Malaise [Not Recovered/Not Resolved]
